FAERS Safety Report 16216759 (Version 2)
Quarter: 2019Q2

REPORT INFORMATION
  Report Type: Spontaneous
  Country: FR (occurrence: FR)
  Receive Date: 20190419
  Receipt Date: 20190506
  Transmission Date: 20190711
  Serious: Yes (Disabling, Other)
  Sender: FDA-Public Use
  Company Number: PHHY2019FR088690

PATIENT
  Age: 69 Year
  Sex: Female
  Weight: 65 kg

DRUGS (2)
  1. TASIGNA [Suspect]
     Active Substance: NILOTINIB
     Indication: CHRONIC MYELOID LEUKAEMIA
     Dosage: 400 OT, UNK
     Route: 048
     Dates: start: 201608
  2. LEVOTHYROX [Concomitant]
     Active Substance: LEVOTHYROXINE
     Indication: HYPOTHYROIDISM
     Dosage: UNK
     Route: 048
     Dates: start: 2010, end: 201901

REACTIONS (2)
  - Endocrine ophthalmopathy [Recovering/Resolving]
  - Hyperthyroidism [Recovering/Resolving]

NARRATIVE: CASE EVENT DATE: 201808
